FAERS Safety Report 13924420 (Version 7)
Quarter: 2018Q3

REPORT INFORMATION
  Report Type: Report from Study
  Country: CA (occurrence: CA)
  Receive Date: 20170831
  Receipt Date: 20180831
  Transmission Date: 20181010
  Serious: Yes (Other)
  Sender: FDA-Public Use
  Company Number: CA-ROCHE-1984882

PATIENT
  Age: 74 Year
  Sex: Female

DRUGS (10)
  1. ACTEMRA [Suspect]
     Active Substance: TOCILIZUMAB
     Route: 042
     Dates: start: 20180305
  2. ACTEMRA [Suspect]
     Active Substance: TOCILIZUMAB
     Indication: RHEUMATOID ARTHRITIS
     Route: 042
     Dates: start: 20160316
  3. ACTEMRA [Suspect]
     Active Substance: TOCILIZUMAB
     Route: 042
     Dates: start: 20160722
  4. COLCHICINE. [Concomitant]
     Active Substance: COLCHICINE
  5. ACTEMRA [Suspect]
     Active Substance: TOCILIZUMAB
     Route: 042
     Dates: start: 20180430
  6. ACTEMRA [Suspect]
     Active Substance: TOCILIZUMAB
     Dosage: INFUSION #18
     Route: 042
     Dates: start: 20170821
  7. METHOTREXATE. [Concomitant]
     Active Substance: METHOTREXATE
  8. DEXILANT [Concomitant]
     Active Substance: DEXLANSOPRAZOLE
  9. FOLIC ACID. [Concomitant]
     Active Substance: FOLIC ACID
  10. BUTRANS [Concomitant]
     Active Substance: BUPRENORPHINE

REACTIONS (7)
  - Spinal column stenosis [Unknown]
  - Disability assessment scale score decreased [Recovering/Resolving]
  - Angiopathy [Unknown]
  - Muscle spasms [Unknown]
  - Arthralgia [Unknown]
  - Foot fracture [Unknown]
  - Hypotension [Unknown]

NARRATIVE: CASE EVENT DATE: 20170807
